FAERS Safety Report 22987420 (Version 2)
Quarter: 2023Q4

REPORT INFORMATION
  Report Type: Report from Study
  Country: US (occurrence: US)
  Receive Date: 20230926
  Receipt Date: 20231124
  Transmission Date: 20240109
  Serious: Yes (Other)
  Sender: FDA-Public Use
  Company Number: US-ABBVIE-5416403

PATIENT
  Age: 68 Year
  Sex: Male

DRUGS (1)
  1. SKYRIZI [Suspect]
     Active Substance: RISANKIZUMAB-RZAA
     Indication: Crohn^s disease
     Route: 042

REACTIONS (14)
  - Intestinal resection [Unknown]
  - Joint swelling [Not Recovered/Not Resolved]
  - Fistula [Unknown]
  - Device related infection [Unknown]
  - Skin disorder [Not Recovered/Not Resolved]
  - Pain [Unknown]
  - Gastrointestinal procedural complication [Unknown]
  - Cyst [Not Recovered/Not Resolved]
  - Needle issue [Unknown]
  - Hypoaesthesia [Not Recovered/Not Resolved]
  - Abdominal pain upper [Not Recovered/Not Resolved]
  - Pain in extremity [Not Recovered/Not Resolved]
  - Contusion [Not Recovered/Not Resolved]
  - Gait disturbance [Not Recovered/Not Resolved]

NARRATIVE: CASE EVENT DATE: 20230101
